FAERS Safety Report 14194101 (Version 1)
Quarter: 2017Q4

REPORT INFORMATION
  Report Type: Spontaneous
  Country: US (occurrence: None)
  Receive Date: 20171115
  Receipt Date: 20171115
  Transmission Date: 20180321
  Serious: No
  Sender: FDA-Public Use
  Company Number: None

PATIENT
  Sex: Male

DRUGS (1)
  1. TREMFYA [Suspect]
     Active Substance: GUSELKUMAB
     Indication: PSORIASIS
     Dosage: 100 MG EVERY 8 WEEKS SUBCUTANEOUSLY
     Route: 058
     Dates: start: 20170908

REACTIONS (2)
  - Blood pressure increased [None]
  - Dizziness [None]
